FAERS Safety Report 9600218 (Version 1)
Quarter: 2013Q4

REPORT INFORMATION
  Report Type: Spontaneous
  Country: US (occurrence: US)
  Receive Date: 20131004
  Receipt Date: 20131004
  Transmission Date: 20140711
  Serious: No
  Sender: FDA-Public Use
  Company Number: US-AMGEN-USASP2013033108

PATIENT
  Age: 54 Year
  Sex: Female
  Weight: 99.77 kg

DRUGS (6)
  1. ENBREL [Suspect]
     Indication: PRODUCT USED FOR UNKNOWN INDICATION
     Dosage: 50 MG, QWK
     Route: 058
  2. NEXIUM                             /01479302/ [Concomitant]
     Dosage: 20 MG, UNK
  3. SKELAXIN                           /00611501/ [Concomitant]
     Dosage: 800 MG, UNK
  4. VICODIN [Concomitant]
     Dosage: 5-300 MG, UNK
  5. POTASSIUM [Concomitant]
     Dosage: 25 MEQ, EF
  6. HYDROXYCHLOROQUINE [Concomitant]
     Dosage: 200 MG, UNK

REACTIONS (1)
  - Joint swelling [Unknown]
